FAERS Safety Report 8188703-7 (Version None)
Quarter: 2012Q1

REPORT INFORMATION
  Report Type: 
  Country: None (occurrence: None)
  Receive Date: 20120306
  Receipt Date: 20120301
  Transmission Date: 20120608
  Serious: Yes (Other)
  Sender: FDA-Public Use
  Company Number: US-MEDIMMUNE-MEDI-0014932

PATIENT
  Sex: Male
  Weight: 8.24 kg

DRUGS (9)
  1. SYNAGIS [Suspect]
     Indication: INFANTILE SPASMS
  2. CALCIUM [Concomitant]
  3. CLONEZAPAM [Concomitant]
  4. SYNAGIS [Suspect]
     Route: 030
     Dates: start: 20111104, end: 20111230
  5. VIGABATRIN [Concomitant]
  6. VITAMIN B-12 [Concomitant]
  7. OMEPRAZOLE [Concomitant]
  8. MIRALAX [Concomitant]
  9. VITAMIN B6 [Concomitant]

REACTIONS (2)
  - CONVULSION [None]
  - RESPIRATORY SYNCYTIAL VIRUS INFECTION [None]
